FAERS Safety Report 5628690-6 (Version None)
Quarter: 2008Q1

REPORT INFORMATION
  Report Type: 
  Country: None (occurrence: None)
  Receive Date: 20080215
  Receipt Date: 20080206
  Transmission Date: 20080703
  Serious: Yes (Other)
  Sender: FDA-Public Use
  Company Number: US-PFIZER INC-2008011900

PATIENT
  Sex: Male
  Weight: 81.818 kg

DRUGS (2)
  1. NORVASC [Suspect]
     Indication: HYPERTENSION
     Dosage: DAILY DOSE:10MG
  2. COZAAR [Concomitant]

REACTIONS (2)
  - NERVOUS SYSTEM DISORDER [None]
  - NERVOUSNESS [None]
